FAERS Safety Report 6662515-5 (Version None)
Quarter: 2010Q1

REPORT INFORMATION
  Report Type: 
  Country: None (occurrence: None)
  Receive Date: 20100329
  Receipt Date: 20100324
  Transmission Date: 20100710
  Serious: Yes (Other)
  Sender: FDA-Public Use
  Company Number: SP02709

PATIENT
  Age: 62 Year
  Sex: Female

DRUGS (10)
  1. VISICOL [Suspect]
     Indication: BOWEL PREPARATION
     Dosage: ORAL
  2. DIAZEPAM [Concomitant]
  3. OLMESARTAN MEDOXIMIL [Concomitant]
  4. AMLODIPINE [Concomitant]
  5. FAMOTIDINE [Concomitant]
  6. MOSAPRIDE CITRATE [Concomitant]
  7. TRIMEBUTINE [Concomitant]
  8. EPERISONE [Concomitant]
  9. MELOXICAM [Concomitant]
  10. DICLOFENAC SODIUM [Concomitant]

REACTIONS (10)
  - ACUTE PRERENAL FAILURE [None]
  - ASCITES [None]
  - BRAIN NATRIURETIC PEPTIDE INCREASED [None]
  - DIARRHOEA [None]
  - HEADACHE [None]
  - HYPOKALAEMIA [None]
  - MALAISE [None]
  - PALPITATIONS [None]
  - RASH GENERALISED [None]
  - REFUSAL OF TREATMENT BY PATIENT [None]
